FAERS Safety Report 18863387 (Version 1)
Quarter: 2021Q1

REPORT INFORMATION
  Report Type: Other
  Country: US (occurrence: US)
  Receive Date: 20210208
  Receipt Date: 20210208
  Transmission Date: 20210420
  Serious: No
  Sender: FDA-Public Use
  Company Number: US-SLATE RUN PHARMACEUTICALS-21US000379

PATIENT

DRUGS (3)
  1. DESVENLAFAXINE EXTENDED?RELEASE [Suspect]
     Active Substance: DESVENLAFAXINE SUCCINATE
     Indication: ANXIETY
     Dosage: 100 MILLIGRAM, BID
     Route: 048
     Dates: start: 2020, end: 2020
  2. DESVENLAFAXINE EXTENDED?RELEASE [Suspect]
     Active Substance: DESVENLAFAXINE SUCCINATE
     Dosage: 100 MILLIGRAM, QD
     Route: 048
     Dates: start: 2020, end: 2020
  3. DESVENLAFAXINE EXTENDED?RELEASE [Suspect]
     Active Substance: DESVENLAFAXINE SUCCINATE
     Indication: DEPRESSION
     Dosage: 100 MILLIGRAM, QD
     Route: 048
     Dates: start: 2020, end: 2020

REACTIONS (5)
  - Withdrawal syndrome [Recovered/Resolved]
  - Therapeutic product effect decreased [Unknown]
  - Off label use [Recovered/Resolved]
  - Dizziness [Recovered/Resolved]
  - Product substitution issue [Unknown]

NARRATIVE: CASE EVENT DATE: 2020
